FAERS Safety Report 18489034 (Version 1)
Quarter: 2020Q4

REPORT INFORMATION
  Report Type: Spontaneous
  Country: US (occurrence: US)
  Receive Date: 20201110
  Receipt Date: 20201110
  Transmission Date: 20210114
  Serious: No
  Sender: FDA-Public Use
  Company Number: US-ELI_LILLY_AND_COMPANY-US202011004490

PATIENT
  Sex: Male

DRUGS (6)
  1. INSULIN HUMAN [Suspect]
     Active Substance: INSULIN HUMAN
     Dosage: 14 U, EACH EVENING
     Route: 065
     Dates: start: 2008
  2. INSULIN HUMAN [Suspect]
     Active Substance: INSULIN HUMAN
     Dosage: 46 U, EACH EVENING
     Route: 065
     Dates: start: 20081231, end: 200911
  3. INSULIN HUMAN [Suspect]
     Active Substance: INSULIN HUMAN
     Dosage: 32 U, EACH EVENING
     Route: 065
     Dates: start: 2015
  4. INSULIN HUMAN [Suspect]
     Active Substance: INSULIN HUMAN
     Dosage: 46 U, EACH EVENING
     Route: 065
     Dates: start: 2015
  5. INSULIN HUMAN [Suspect]
     Active Substance: INSULIN HUMAN
     Indication: DIABETES MELLITUS
     Dosage: 16 U, EACH MORNING
     Route: 065
     Dates: start: 2008
  6. INSULIN HUMAN [Suspect]
     Active Substance: INSULIN HUMAN
     Indication: DIABETES MELLITUS
     Dosage: 32 U, EACH EVENING
     Route: 065
     Dates: start: 20081231, end: 200911

REACTIONS (2)
  - Glycosylated haemoglobin decreased [Unknown]
  - Weight decreased [Unknown]
